FAERS Safety Report 4578966-9 (Version None)
Quarter: 2005Q1

REPORT INFORMATION
  Report Type: 
  Country: None (occurrence: None)
  Receive Date: 20050121
  Receipt Date: 20040625
  Transmission Date: 20050727
  Serious: Yes (Other)
  Sender: FDA-Public Use
  Company Number: HQWYE727228JUN04

PATIENT
  Sex: Female

DRUGS (1)
  1. NORPLANT SYSTEM [Suspect]
     Indication: CONTRACEPTION
     Dosage: 6 CAPSULES, SUBCUTANEOUS
     Route: 058
     Dates: start: 19930101, end: 19950101

REACTIONS (6)
  - ABDOMINAL PAIN [None]
  - BREAST DISCHARGE [None]
  - BREAST PAIN [None]
  - ECTOPIC PREGNANCY [None]
  - OVARIAN CYST [None]
  - PELVIC INFLAMMATORY DISEASE [None]
